FAERS Safety Report 4441595-1 (Version None)
Quarter: 2004Q3

REPORT INFORMATION
  Report Type: 
  Country: None (occurrence: None)
  Receive Date: 20040728
  Receipt Date: 20040510
  Transmission Date: 20050211
  Serious: Yes (Hospitalization)
  Sender: FDA-Public Use
  Company Number: USA040361307

PATIENT
  Age: 8 Year
  Sex: Female
  Weight: 44 kg

DRUGS (7)
  1. ZYPREXA [Suspect]
     Indication: AFFECTIVE DISORDER
     Dosage: 5 MG/2 DAY
     Dates: start: 20021201
  2. ZYPREXA [Suspect]
     Indication: BIPOLAR DISORDER
     Dosage: 5 MG/2 DAY
     Dates: start: 20021201
  3. CELEXA [Concomitant]
  4. RITALIN [Concomitant]
  5. TRILEPTAL [Concomitant]
  6. RANITIDINE [Concomitant]
  7. CLONIDINE HCL [Concomitant]

REACTIONS (8)
  - AGGRESSION [None]
  - HAEMATEMESIS [None]
  - HALLUCINATIONS, MIXED [None]
  - HUNGER [None]
  - INTENTIONAL SELF-INJURY [None]
  - PSYCHOMOTOR HYPERACTIVITY [None]
  - SUICIDAL IDEATION [None]
  - WEIGHT INCREASED [None]
